FAERS Safety Report 8165624-7 (Version None)
Quarter: 2012Q1

REPORT INFORMATION
  Report Type: 
  Country: None (occurrence: None)
  Receive Date: 20120103
  Receipt Date: 20111110
  Transmission Date: 20120608
  Serious: No
  Sender: FDA-Public Use
  Company Number: AE-2011-002456

PATIENT
  Age: 58 Year
  Sex: Male
  Weight: 60.3284 kg

DRUGS (3)
  1. INCIVEK [Suspect]
     Dosage: 2250 MG (750 MG, 3 IN 1 D), ORAL
     Route: 048
     Dates: start: 20110926, end: 20111028
  2. PEGASYS [Concomitant]
  3. RIBAPAK (RIBAVIRIN) [Concomitant]

REACTIONS (5)
  - PLATELET COUNT DECREASED [None]
  - FATIGUE [None]
  - MALAISE [None]
  - RASH [None]
  - MOBILITY DECREASED [None]
